FAERS Safety Report 4379554-X (Version None)
Quarter: 2004Q2

REPORT INFORMATION
  Report Type: 
  Country: None (occurrence: None)
  Receive Date: 20040614
  Receipt Date: 20040528
  Transmission Date: 20050107
  Serious: Yes (Hospitalization)
  Sender: FDA-Public Use
  Company Number: 2004-BP-04215RO

PATIENT
  Age: 77 Year
  Sex: Female
  Weight: 66.5 kg

DRUGS (7)
  1. PREDNISONE TAB [Suspect]
     Dosage: 60 MG DAILY
  2. ZOLEDRONIC ACID VS PLACEBO (CODE NT BROKEN) [Suspect]
     Indication: OSTEOPOROTIC FRACTURE
  3. VITAMIN D [Concomitant]
  4. CALCIUM CARBONATE (CALCIUM CARBONATE) [Concomitant]
  5. NORVASC [Concomitant]
  6. NEXIUM [Concomitant]
  7. LOPID [Concomitant]

REACTIONS (15)
  - BACTERIAL INFECTION [None]
  - BONE MARROW DEPRESSION [None]
  - CONTUSION [None]
  - DISEASE PROGRESSION [None]
  - DISSEMINATED INTRAVASCULAR COAGULATION [None]
  - DYSPNOEA [None]
  - EATING DISORDER [None]
  - HEADACHE [None]
  - INFLUENZA LIKE ILLNESS [None]
  - LOBAR PNEUMONIA [None]
  - PNEUMONIA PNEUMOCOCCAL [None]
  - TEMPORAL ARTERITIS [None]
  - THROMBOCYTOPENIA [None]
  - VIRAL INFECTION [None]
  - VISION BLURRED [None]
